FAERS Safety Report 7290020-4 (Version None)
Quarter: 2011Q1

REPORT INFORMATION
  Report Type: 
  Country: None (occurrence: None)
  Receive Date: 20110209
  Receipt Date: 20110209
  Transmission Date: 20110831
  Serious: No
  Sender: FDA-Public Use
  Company Number: None

PATIENT
  Age: 46 Year
  Sex: Female
  Weight: 95.709 kg

DRUGS (2)
  1. LORTAB [Suspect]
     Indication: COMPLEX REGIONAL PAIN SYNDROME
     Dosage: 60 TWICE DAILY PO
     Route: 048
     Dates: start: 20110131, end: 20110208
  2. LORTAB [Suspect]

REACTIONS (4)
  - DISORIENTATION [None]
  - FEELING ABNORMAL [None]
  - FALL [None]
  - PRODUCT QUALITY ISSUE [None]
